FAERS Safety Report 5250059-7 (Version None)
Quarter: 2007Q1

REPORT INFORMATION
  Report Type: 
  Country: None (occurrence: None)
  Receive Date: 20070228
  Receipt Date: 20060216
  Transmission Date: 20070707
  Serious: No
  Sender: FDA-Public Use
  Company Number: US-GLAXOSMITHKLINE-A0591718A

PATIENT
  Age: 14 Year
  Sex: Female

DRUGS (2)
  1. LAMICTAL [Suspect]
     Indication: AGGRESSION
     Dosage: 25MG PER DAY
     Route: 048
     Dates: start: 20060111, end: 20060117
  2. TRAZODONE HCL [Concomitant]
     Dosage: 25MG AT NIGHT
     Route: 048
     Dates: start: 20031205

REACTIONS (1)
  - RASH [None]
